FAERS Safety Report 10436585 (Version 2)
Quarter: 2014Q3

REPORT INFORMATION
  Report Type: Spontaneous
  Country: US (occurrence: US)
  Receive Date: 20140908
  Receipt Date: 20140908
  Transmission Date: 20150326
  Serious: No
  Sender: FDA-Public Use
  Company Number: US-BRISTOL-MYERS SQUIBB COMPANY-20678231

PATIENT
  Age: 50 Year
  Sex: Female
  Weight: 56.69 kg

DRUGS (6)
  1. CYMBALTA [Concomitant]
     Active Substance: DULOXETINE HYDROCHLORIDE
  2. ABILIFY [Suspect]
     Active Substance: ARIPIPRAZOLE
  3. RITALIN [Concomitant]
     Active Substance: METHYLPHENIDATE HYDROCHLORIDE
     Dosage: 1DF:40-45MG
  4. RITALIN SR [Concomitant]
     Active Substance: METHYLPHENIDATE HYDROCHLORIDE
  5. VALIUM [Concomitant]
     Active Substance: DIAZEPAM
     Indication: ANXIETY
  6. ABILIFY DISCMELT [Suspect]
     Active Substance: ARIPIPRAZOLE
     Dosage: LAST DOES ON:APR14

REACTIONS (4)
  - Somnolence [Unknown]
  - Drug ineffective [Unknown]
  - Drug dose omission [Unknown]
  - Medication error [Unknown]
